FAERS Safety Report 10216462 (Version 1)
Quarter: 2014Q2

REPORT INFORMATION
  Report Type: Spontaneous
  Country: US (occurrence: None)
  Receive Date: 20140603
  Receipt Date: 20140603
  Transmission Date: 20141212
  Serious: No
  Sender: FDA-Public Use
  Company Number: None

PATIENT
  Age: 33 Year
  Sex: Female
  Weight: 79.38 kg

DRUGS (4)
  1. TERBINAFINE TABLETS HCL, USP (250MG) [Suspect]
     Indication: FUNGAL INFECTION
     Dosage: TABLET, 250 MG (3), 1 TABLET, 1 TABLET BY MOUTH EVERY DAY, BY MOUTH
     Route: 048
     Dates: start: 20140222, end: 20140507
  2. AMOXICILLIN [Concomitant]
  3. VIT D [Concomitant]
  4. CLARITIN [Concomitant]

REACTIONS (7)
  - Diarrhoea [None]
  - Abdominal discomfort [None]
  - Abdominal pain [None]
  - Flatulence [None]
  - Depression [None]
  - Asthenia [None]
  - Somnolence [None]
